FAERS Safety Report 17636294 (Version 6)
Quarter: 2020Q2

REPORT INFORMATION
  Report Type: Report from Study
  Country: RS (occurrence: RS)
  Receive Date: 20200407
  Receipt Date: 20200527
  Transmission Date: 20200713
  Serious: Yes (Life-Threatening)
  Sender: FDA-Public Use
  Company Number: NVSC2020RS090791

PATIENT
  Age: 46 Year
  Sex: Female
  Weight: 67 kg

DRUGS (3)
  1. CGP 41251 / PKC 412A [Suspect]
     Active Substance: MIDOSTAURIN
     Indication: ACUTE MYELOID LEUKAEMIA
     Dosage: 50 MG, BID
     Route: 048
     Dates: start: 20200128
  2. IDARUBICIN COMP_IDA+ [Suspect]
     Active Substance: IDARUBICIN
     Indication: ACUTE MYELOID LEUKAEMIA
     Dosage: 12 MG/M2, QD
     Route: 042
     Dates: start: 20200319
  3. CYTARABINE. [Suspect]
     Active Substance: CYTARABINE
     Indication: ACUTE MYELOID LEUKAEMIA
     Dosage: 200 MG/M2, QD
     Route: 041
     Dates: start: 20200319

REACTIONS (3)
  - Septic shock [Not Recovered/Not Resolved]
  - Disseminated intravascular coagulation [Not Recovered/Not Resolved]
  - Hypernatraemia [Not Recovered/Not Resolved]

NARRATIVE: CASE EVENT DATE: 20200401
